FAERS Safety Report 25238466 (Version 2)
Quarter: 2025Q3

REPORT INFORMATION
  Report Type: Spontaneous
  Country: JP (occurrence: JP)
  Receive Date: 20250425
  Receipt Date: 20250904
  Transmission Date: 20251020
  Serious: Yes (Hospitalization, Other)
  Sender: INSMED
  Company Number: JP-INSMED, INC.-2025-01391-JP

PATIENT
  Age: 8 Decade
  Sex: Male

DRUGS (1)
  1. ARIKAYCE [Suspect]
     Active Substance: AMIKACIN
     Indication: Mycobacterium avium complex infection
     Route: 055

REACTIONS (2)
  - Organising pneumonia [Recovered/Resolved]
  - Drug resistance [Unknown]
